FAERS Safety Report 6529450-4 (Version None)
Quarter: 2010Q1

REPORT INFORMATION
  Report Type: 
  Country: None (occurrence: None)
  Receive Date: 20100107
  Receipt Date: 20091229
  Transmission Date: 20100710
  Serious: Yes (Hospitalization)
  Sender: FDA-Public Use
  Company Number: FR-NOVOPROD-301555

PATIENT
  Age: 74 Year
  Sex: Female

DRUGS (11)
  1. NOVONORM [Suspect]
     Indication: TYPE 2 DIABETES MELLITUS
     Dosage: 1 MG, TID
     Route: 048
  2. NOVONORM [Suspect]
     Dosage: 1.5 MG, QD
  3. COKENZEN [Suspect]
     Route: 048
  4. ACEBUTOLOL [Suspect]
     Dosage: 0.5 UNKNOWN, UNK
     Route: 048
  5. PREVISCAN                          /00261401/ [Concomitant]
  6. CRESTOR [Concomitant]
  7. FUROSEMIDE [Concomitant]
  8. STABLON                            /00956301/ [Concomitant]
  9. ALPRAZOLAM [Concomitant]
  10. ZOPICLONE [Concomitant]
  11. CIPROFLOXACIN HCL [Concomitant]

REACTIONS (2)
  - DYSARTHRIA [None]
  - HYPOGLYCAEMIA [None]
